FAERS Safety Report 15296548 (Version 1)
Quarter: 2018Q3

REPORT INFORMATION
  Report Type: Spontaneous
  Country: ES (occurrence: ES)
  Receive Date: 20180820
  Receipt Date: 20180820
  Transmission Date: 20181010
  Serious: Yes (Other)
  Sender: FDA-Public Use
  Company Number: ES-JNJFOC-20180821489

PATIENT
  Age: 52 Year
  Sex: Female

DRUGS (1)
  1. ZALDIAR [Suspect]
     Active Substance: ACETAMINOPHEN\TRAMADOL HYDROCHLORIDE
     Indication: EAR PAIN
     Route: 065
     Dates: start: 201804, end: 201805

REACTIONS (8)
  - Headache [Unknown]
  - Insomnia [Unknown]
  - Dizziness [Unknown]
  - Abdominal pain [Unknown]
  - Amnestic disorder [Unknown]
  - Constipation [Unknown]
  - Pain in jaw [Unknown]
  - Urinary retention [Unknown]

NARRATIVE: CASE EVENT DATE: 201804
